FAERS Safety Report 8541443-4 (Version None)
Quarter: 2012Q3

REPORT INFORMATION
  Report Type: 
  Country: None (occurrence: None)
  Receive Date: 20120726
  Receipt Date: 20120705
  Transmission Date: 20120928
  Serious: Yes (Hospitalization, Other)
  Sender: FDA-Public Use
  Company Number: FR-PFIZER INC-2011262437

PATIENT
  Sex: Female

DRUGS (3)
  1. SOLU-MEDROL [Suspect]
     Indication: MULTIPLE SCLEROSIS
     Dosage: 500 MG, SINGLE EVERY 3 OR 4 MONTHS
     Route: 040
  2. ACETAMINOPHEN AND CODEINE PHOSPHATE [Concomitant]
     Dosage: 1 G, 1X/DAY
  3. NAPROXEN [Concomitant]
     Dosage: 1 TO 2 DOSE FORMS PER DAY AS NEEDED

REACTIONS (2)
  - PARAESTHESIA [None]
  - ANAPHYLACTIC REACTION [None]
